FAERS Safety Report 14449777 (Version 2)
Quarter: 2019Q1

REPORT INFORMATION
  Report Type: Other
  Country: US (occurrence: US)
  Receive Date: 20180128
  Receipt Date: 20190126
  Transmission Date: 20190417
  Serious: Yes (Other)
  Sender: FDA-Public Use
  Company Number: US-ACORDA-ACO_141647_2017

PATIENT
  Age: 51 Year
  Sex: Female

DRUGS (3)
  1. TYSABRI [Suspect]
     Active Substance: NATALIZUMAB
     Indication: MULTIPLE SCLEROSIS
     Dosage: 300 MG, INFUSED OVER 1 HOUR MONTHLY
     Route: 042
     Dates: start: 201502, end: 201702
  2. AMPYRA [Suspect]
     Active Substance: DALFAMPRIDINE
     Indication: GAIT DISTURBANCE
     Dosage: UNK
     Route: 065
     Dates: start: 201502
  3. TYSABRI [Suspect]
     Active Substance: NATALIZUMAB
     Dosage: 300 MG, INFUSED OVER 1 HOUR MONTHLY
     Route: 042
     Dates: start: 201710

REACTIONS (10)
  - Fall [Recovered/Resolved]
  - Wound [Recovered/Resolved]
  - Implant tissue necrosis [Not Recovered/Not Resolved]
  - Jaw fracture [Recovered/Resolved]
  - Bacterial infection [Recovered/Resolved]
  - Medical device removal [Recovered/Resolved]
  - Gait disturbance [Not Recovered/Not Resolved]
  - Depression [Recovered/Resolved]
  - Condition aggravated [Not Recovered/Not Resolved]
  - Scar [Recovered/Resolved]

NARRATIVE: CASE EVENT DATE: 201702
